FAERS Safety Report 8763871 (Version 1)
Quarter: 2012Q4

REPORT INFORMATION
  Report Type: 
  Country: NL (occurrence: NL)
  Receive Date: 20120831
  Receipt Date: 20120831
  Transmission Date: 20130627
  Serious: Yes (Other)
  Sender: FDA-Public Use
  Company Number: PHHY2012NL075086

PATIENT
  Age: 67 Year
  Sex: Female
  Weight: 59.9 kg

DRUGS (12)
  1. SANDOSTATIN LAR [Suspect]
     Indication: POST GASTRIC SURGERY SYNDROME
     Dosage: 10 mg, TIW
     Route: 030
     Dates: start: 2007
  2. PARACETAMOL + CODEINE [Concomitant]
  3. DICLOFENAC [Concomitant]
  4. NEXIUM [Concomitant]
  5. PANCREASE HL [Concomitant]
  6. DUSPATAL [Concomitant]
  7. TEMAZEPAM [Concomitant]
  8. COSEPT [Concomitant]
  9. FLUOROMETHOLONE [Concomitant]
  10. PRED-FORTE [Concomitant]
  11. NOVORAPID [Concomitant]
  12. LANTUS [Concomitant]

REACTIONS (4)
  - Hallucination [Not Recovered/Not Resolved]
  - Pyrexia [Not Recovered/Not Resolved]
  - Blood glucose abnormal [Not Recovered/Not Resolved]
  - Vomiting [Not Recovered/Not Resolved]
